FAERS Safety Report 4328129-7 (Version None)
Quarter: 2004Q1

REPORT INFORMATION
  Report Type: 
  Country: None (occurrence: None)
  Receive Date: 20040325
  Receipt Date: 20030127
  Transmission Date: 20041129
  Serious: Yes (Other)
  Sender: FDA-Public Use
  Company Number: 200310163GDS

PATIENT
  Age: 46 Year
  Sex: Female
  Weight: 72 kg

DRUGS (1)
  1. AVELOX [Suspect]
     Indication: UPPER RESPIRATORY TRACT INFECTION
     Dosage: 400 MG, TOTAL DAILY, ORAL
     Route: 048
     Dates: start: 20020808

REACTIONS (1)
  - ERYTHEMA MULTIFORME [None]
